FAERS Safety Report 20573907 (Version 3)
Quarter: 2024Q4

REPORT INFORMATION
  Report Type: Spontaneous
  Country: US (occurrence: US)
  Receive Date: 20220309
  Receipt Date: 20241110
  Transmission Date: 20250115
  Serious: No
  Sender: SANOFI AVENTIS
  Company Number: US-SA-SAC20220304000941

PATIENT
  Age: 31 Year
  Sex: Male

DRUGS (49)
  1. DUPIXENT [Suspect]
     Active Substance: DUPILUMAB
     Indication: Hidradenitis
     Dosage: 300 MG, QOW
     Route: 058
     Dates: start: 20220309
  2. DUPIXENT [Suspect]
     Active Substance: DUPILUMAB
     Indication: Asthma
  3. DOXYCYCLINE HYCLATE [Concomitant]
     Active Substance: DOXYCYCLINE HYCLATE
  4. CEPHALEXIN [Concomitant]
     Active Substance: CEPHALEXIN
  5. CLARAVIS [Concomitant]
     Active Substance: ISOTRETINOIN
     Dosage: 20 MG
  6. CLINDAMYCIN PHOSPHATE [Concomitant]
     Active Substance: CLINDAMYCIN PHOSPHATE
  7. COMBIVENT [Concomitant]
     Active Substance: ALBUTEROL SULFATE\IPRATROPIUM BROMIDE
     Dosage: 20-100
  8. DESOWEN [Concomitant]
     Active Substance: DESONIDE
     Dosage: UNK
  9. DIFLUCAN [Concomitant]
     Active Substance: FLUCONAZOLE
  10. DULERA [Concomitant]
     Active Substance: FORMOTEROL FUMARATE DIHYDRATE\MOMETASONE FUROATE
     Dosage: 200-5UG
  11. FLONASE ALLERGY RELIEF [Concomitant]
     Active Substance: FLUTICASONE PROPIONATE
     Dosage: 50 UG
  12. FLOVENT [Concomitant]
     Active Substance: FLUTICASONE PROPIONATE
     Dosage: UNK
  13. FLUOXETINE [Concomitant]
     Active Substance: FLUOXETINE HYDROCHLORIDE
     Dosage: UNK
  14. MOMETASONE [Concomitant]
     Active Substance: MOMETASONE
     Dosage: UNK
  15. MUPIROCIN [Concomitant]
     Active Substance: MUPIROCIN
  16. HYDROXYZINE HYDROCHLORIDE [Concomitant]
     Active Substance: HYDROXYZINE HYDROCHLORIDE
     Dosage: 10 MG
  17. HYDROXYZINE HYDROCHLORIDE [Concomitant]
     Active Substance: HYDROXYZINE HYDROCHLORIDE
     Dosage: 50 MG
  18. ALBUTEROL [Concomitant]
     Active Substance: ALBUTEROL
     Dosage: UNK
  19. ALBUTEROL SULFATE [Concomitant]
     Active Substance: ALBUTEROL SULFATE
  20. CLINDAMYCIN [Concomitant]
     Active Substance: CLINDAMYCIN
  21. CLOBETASOL [Concomitant]
     Active Substance: CLOBETASOL
  22. ESCITALOPRAM [Concomitant]
     Active Substance: ESCITALOPRAM OXALATE
  23. MOMETASONE FUROATE [Concomitant]
     Active Substance: MOMETASONE FUROATE
  24. GABAPENTIN [Concomitant]
     Active Substance: GABAPENTIN
  25. MONTELUKAST [Concomitant]
     Active Substance: MONTELUKAST
  26. PREDNISONE [Concomitant]
     Active Substance: PREDNISONE
  27. RABEPRAZOLE [Concomitant]
     Active Substance: RABEPRAZOLE
  28. ROSUVASTATIN [Concomitant]
     Active Substance: ROSUVASTATIN
  29. SUCRALFATE [Concomitant]
     Active Substance: SUCRALFATE
  30. DOXYCYCLINE HYDROCHLORIDE [Concomitant]
     Active Substance: DOXYCYCLINE HYDROCHLORIDE
  31. HYDROXYZINE HYDROCHLORIDE [Concomitant]
     Active Substance: HYDROXYZINE HYDROCHLORIDE
  32. PREDNISONE [Concomitant]
     Active Substance: PREDNISONE
  33. EUTHYROX [Concomitant]
     Active Substance: LEVOTHYROXINE SODIUM
  34. AZITHROMYCIN [Concomitant]
     Active Substance: AZITHROMYCIN
  35. ZYRTEC [Concomitant]
     Active Substance: CETIRIZINE HYDROCHLORIDE
  36. LEVOTHYROXINE [Concomitant]
     Active Substance: LEVOTHYROXINE
  37. FLUTICASONE [Concomitant]
     Active Substance: FLUTICASONE
  38. FLONASE ALLERGY RELIEF [Concomitant]
     Active Substance: FLUTICASONE PROPIONATE
  39. CARAFATE [Concomitant]
     Active Substance: SUCRALFATE
  40. DESOWEN [Concomitant]
     Active Substance: DESONIDE
  41. DOXYCYCLINE HYCLATE [Concomitant]
     Active Substance: DOXYCYCLINE HYCLATE
  42. ALBUTEROL [Concomitant]
     Active Substance: ALBUTEROL
  43. CEPHALEXIN [Concomitant]
     Active Substance: CEPHALEXIN
  44. SUCRALFATE [Concomitant]
     Active Substance: SUCRALFATE
  45. TESSALON [Concomitant]
     Active Substance: BENZONATATE
  46. CLINDAMYCIN PHOSPHATE [Concomitant]
     Active Substance: CLINDAMYCIN PHOSPHATE
  47. FLOVENT [Concomitant]
     Active Substance: FLUTICASONE PROPIONATE
  48. MOMETASONE [Concomitant]
     Active Substance: MOMETASONE
  49. PEPCID [Concomitant]
     Active Substance: FAMOTIDINE

REACTIONS (4)
  - Asthma [Not Recovered/Not Resolved]
  - Condition aggravated [Not Recovered/Not Resolved]
  - Impaired quality of life [Not Recovered/Not Resolved]
  - Product use in unapproved indication [Unknown]

NARRATIVE: CASE EVENT DATE: 20220309
